FAERS Safety Report 9482319 (Version 1)
Quarter: 2013Q3

REPORT INFORMATION
  Report Type: Spontaneous
  Country: US (occurrence: US)
  Receive Date: 20130828
  Receipt Date: 20130828
  Transmission Date: 20140515
  Serious: No
  Sender: FDA-Public Use
  Company Number: US-009507513-1308USA009242

PATIENT
  Sex: Female

DRUGS (2)
  1. VYTORIN [Suspect]
     Indication: BLOOD CHOLESTEROL INCREASED
     Dosage: 10/20 MG ONCE DAILY
     Route: 048
  2. VYTORIN [Suspect]
     Dosage: 10/20 MG EVERY OTHER DAY
     Route: 048

REACTIONS (2)
  - Pruritus generalised [Recovered/Resolved]
  - Inappropriate schedule of drug administration [Unknown]
